FAERS Safety Report 7607207-0 (Version None)
Quarter: 2011Q3

REPORT INFORMATION
  Report Type: 
  Country: None (occurrence: None)
  Receive Date: 20110713
  Receipt Date: 20110704
  Transmission Date: 20111222
  Serious: Yes (Hospitalization)
  Sender: FDA-Public Use
  Company Number: FR-ASTRAZENECA-2011SE41010

PATIENT
  Sex: Male

DRUGS (4)
  1. METFORMIN HYDROCHLORIDE [Suspect]
     Route: 048
     Dates: start: 20110301, end: 20110414
  2. EXFORGE [Suspect]
     Route: 048
     Dates: end: 20110414
  3. ENALAPRIL MALEATE AND HYDROCHLOROTHIAZIDE [Suspect]
     Route: 048
     Dates: end: 20110414
  4. NEXIUM [Suspect]
     Route: 048
     Dates: end: 20110421

REACTIONS (1)
  - RENAL FAILURE ACUTE [None]
